FAERS Safety Report 11985505 (Version 1)
Quarter: 2016Q1

REPORT INFORMATION
  Report Type: Not Available
  Country: DE (occurrence: US)
  Receive Date: 20160201
  Receipt Date: 20160201
  Transmission Date: 20160526
  Serious: No
  Sender: FDA-Public Use
  Company Number: DE-ANIPHARMA-2014-US-000054

PATIENT
  Age: 63 Year
  Sex: Female

DRUGS (2)
  1. FLUVOXAMINE (NON-SPECIFIC) [Suspect]
     Active Substance: FLUVOXAMINE
     Route: 048
  2. LUVOX CR [Suspect]
     Active Substance: FLUVOXAMINE MALEATE
     Dosage: 450 MG

REACTIONS (1)
  - Depression [Unknown]

NARRATIVE: CASE EVENT DATE: 201411
